FAERS Safety Report 24553751 (Version 1)
Quarter: 2024Q4

REPORT INFORMATION
  Report Type: Report from Study
  Country: GB (occurrence: GB)
  Receive Date: 20241028
  Receipt Date: 20241028
  Transmission Date: 20250114
  Serious: No
  Sender: ROCHE
  Company Number: GB-IPSEN Group, Research and Development-2022-31880

PATIENT
  Age: 32 Year
  Sex: Male

DRUGS (2)
  1. NUTROPIN AQ [Suspect]
     Active Substance: SOMATROPIN
     Indication: Growth hormone deficiency
     Dosage: DAILY
     Route: 058
     Dates: start: 2006
  2. NUTROPIN AQ [Suspect]
     Active Substance: SOMATROPIN
     Dosage: DAILY
     Route: 058
     Dates: start: 20060101

REACTIONS (6)
  - Pain [Unknown]
  - Fatigue [Unknown]
  - Asthenia [Unknown]
  - Inappropriate schedule of product administration [Unknown]
  - Product dose omission issue [Unknown]
  - Product availability issue [Unknown]
